FAERS Safety Report 8826716 (Version 1)
Quarter: 2012Q4

REPORT INFORMATION
  Report Type: 
  Country: CA (occurrence: CA)
  Receive Date: 20121005
  Receipt Date: 20121005
  Transmission Date: 20130627
  Serious: Yes (Other)
  Sender: FDA-Public Use
  Company Number: CA-GLAXOSMITHKLINE-A0946513A

PATIENT
  Age: 73 None
  Sex: Male
  Weight: 84.1 kg

DRUGS (5)
  1. ADVAIR [Suspect]
     Indication: CHRONIC OBSTRUCTIVE PULMONARY DISEASE
     Dosage: 2PUFF Twice per day
     Route: 055
  2. ADVAIR [Suspect]
     Indication: CHRONIC OBSTRUCTIVE PULMONARY DISEASE
     Dosage: 1PUFF Per day
     Route: 055
     Dates: start: 2010
  3. ATROVENT [Suspect]
     Indication: PRODUCT USED FOR UNKNOWN INDICATION
     Dosage: 2PUFF Four times per day
     Route: 065
  4. PROZAC [Concomitant]
  5. BLOOD PRESSURE MEDICATION [Concomitant]

REACTIONS (7)
  - Lower respiratory tract infection [Recovered/Resolved]
  - Stomatitis [Recovered/Resolved]
  - Cough [Recovered/Resolved]
  - Dyspnoea [Recovered/Resolved]
  - Aphonia [Recovered/Resolved]
  - Oral mucosal erythema [Recovered/Resolved]
  - Dysphonia [Recovered/Resolved]
